FAERS Safety Report 7180004-9 (Version None)
Quarter: 2010Q4

REPORT INFORMATION
  Report Type: 
  Country: None (occurrence: None)
  Receive Date: 20101123
  Receipt Date: 20100803
  Transmission Date: 20110411
  Serious: No
  Sender: FDA-Public Use
  Company Number: 016783

PATIENT
  Sex: Female
  Weight: 69.4 kg

DRUGS (2)
  1. CIMZIA [Suspect]
     Indication: RHEUMATOID ARTHRITIS
     Dosage: (400 MG 1X/MONTH SUBCUTANEOUS)
     Route: 058
     Dates: start: 20100614
  2. BENAZEPRIL [Concomitant]

REACTIONS (1)
  - DRUG INEFFECTIVE [None]
